FAERS Safety Report 19920977 (Version 1)
Quarter: 2021Q4

REPORT INFORMATION
  Report Type: Spontaneous
  Country: US (occurrence: US)
  Receive Date: 20211005
  Receipt Date: 20211005
  Transmission Date: 20220303
  Serious: No
  Sender: FDA-Public Use
  Company Number: US-ADAMAS PHARMA, LLC-2021ADA00138

PATIENT
  Age: 65 Year
  Sex: Female
  Weight: 52.15 kg

DRUGS (5)
  1. GOCOVRI [Suspect]
     Active Substance: AMANTADINE
     Indication: Dyskinesia
     Dosage: 137 MG, 1X/DAY AT BEDTIME
     Route: 048
     Dates: start: 20201021
  2. INBRIJA [Concomitant]
     Active Substance: LEVODOPA
     Dosage: UNK
  3. STALEVO [Concomitant]
     Active Substance: CARBIDOPA\ENTACAPONE\LEVODOPA
  4. PARCOPA [Concomitant]
     Active Substance: CARBIDOPA\LEVODOPA
  5. DEEP BRAIN STIMULATION [Concomitant]

REACTIONS (2)
  - Nasal discharge discolouration [Not Recovered/Not Resolved]
  - Middle insomnia [Not Recovered/Not Resolved]

NARRATIVE: CASE EVENT DATE: 20201101
